FAERS Safety Report 7958949-9 (Version None)
Quarter: 2011Q4

REPORT INFORMATION
  Report Type: 
  Country: None (occurrence: None)
  Receive Date: 20111130
  Receipt Date: 20111123
  Transmission Date: 20120403
  Serious: Yes (Other)
  Sender: FDA-Public Use
  Company Number: ADR-2011-11603

PATIENT
  Sex: Male

DRUGS (2)
  1. LIORESAL [Suspect]
     Indication: PAIN
  2. LIORESAL [Suspect]
     Indication: BACK PAIN

REACTIONS (2)
  - STAPHYLOCOCCUS TEST POSITIVE [None]
  - IMPLANT SITE INFECTION [None]
